FAERS Safety Report 8085815-3 (Version None)
Quarter: 2012Q1

REPORT INFORMATION
  Report Type: 
  Country: None (occurrence: None)
  Receive Date: 20120128
  Receipt Date: 20110419
  Transmission Date: 20120608
  Serious: No
  Sender: FDA-Public Use
  Company Number: US-ABBOTT-11P-163-0720163-00

PATIENT
  Age: 39 Year
  Sex: Female

DRUGS (9)
  1. EFFEXOR [Concomitant]
     Indication: SOMNOLENCE
  2. PROVIGIL [Concomitant]
     Indication: SOMNOLENCE
  3. HUMIRA [Suspect]
     Indication: CROHN'S DISEASE
     Dates: start: 20110101
  4. GLUCOPHAGE [Concomitant]
     Indication: GLUCOSE TOLERANCE IMPAIRED
     Dosage: DAILY
  5. EFFEXOR [Concomitant]
     Indication: DEPRESSION
  6. ALLEGRA [Concomitant]
     Indication: SEASONAL ALLERGY
  7. COLOCAL [Concomitant]
     Indication: CROHN'S DISEASE
  8. CRESTOR [Concomitant]
     Indication: BLOOD CHOLESTEROL INCREASED
  9. ADDERALL 5 [Concomitant]
     Indication: SOMNOLENCE

REACTIONS (2)
  - INJECTION SITE HAEMATOMA [None]
  - INJECTION SITE PAIN [None]
